FAERS Safety Report 14544436 (Version 2)
Quarter: 2018Q1

REPORT INFORMATION
  Report Type: Report from Study
  Country: None (occurrence: BR)
  Receive Date: 20180217
  Receipt Date: 20180305
  Transmission Date: 20180509
  Serious: Yes (Hospitalization, Other)
  Sender: FDA-Public Use
  Company Number: BR-ABBVIE-18K-020-2260657-00

PATIENT
  Sex: Female

DRUGS (1)
  1. HUMIRA [Suspect]
     Active Substance: ADALIMUMAB
     Indication: RHEUMATOID ARTHRITIS
     Route: 058
     Dates: start: 20170213

REACTIONS (8)
  - Bedridden [Not Recovered/Not Resolved]
  - Gait inability [Not Recovered/Not Resolved]
  - Hypophagia [Not Recovered/Not Resolved]
  - Malaise [Unknown]
  - Arrhythmia [Not Recovered/Not Resolved]
  - Limb injury [Unknown]
  - Wound infection [Unknown]
  - Blood pressure decreased [Not Recovered/Not Resolved]
